FAERS Safety Report 5536395-5 (Version None)
Quarter: 2007Q4

REPORT INFORMATION
  Report Type: 
  Country: None (occurrence: None)
  Receive Date: 20071204
  Receipt Date: 20071121
  Transmission Date: 20080405
  Serious: Yes (Death, Hospitalization)
  Sender: FDA-Public Use
  Company Number: GXKR2007ES10027

PATIENT
  Age: 75 Year
  Sex: Male

DRUGS (5)
  1. METHYLPREDNISOLONE [Suspect]
     Indication: PNEUMONIA
     Dosage: 80 MG, TID, INTRAVENOUS; 40 MG, BID, INTRAVENOUS
     Route: 042
  2. AMOXICILLIN + CLAVULANIC ACID (AMOXICILLIN, CLAVULANIC ACID) [Concomitant]
  3. CEFTRIAXONE [Concomitant]
  4. LEVOFLOXACIN [Concomitant]
  5. VORICONAZOLE (VORICONAZOLE) [Concomitant]

REACTIONS (4)
  - BRONCHOPULMONARY ASPERGILLOSIS [None]
  - LUNG NEOPLASM [None]
  - PULMONARY CAVITATION [None]
  - RESPIRATORY DISORDER [None]
